FAERS Safety Report 12928615 (Version 1)
Quarter: 2016Q4

REPORT INFORMATION
  Report Type: Spontaneous
  Country: BR (occurrence: BR)
  Receive Date: 20161110
  Receipt Date: 20161110
  Transmission Date: 20170207
  Serious: Yes (Death, Other)
  Sender: FDA-Public Use
  Company Number: BR-TORRENT-00003663

PATIENT
  Sex: Male

DRUGS (1)
  1. EPZ [Suspect]
     Active Substance: DONEPEZIL HYDROCHLORIDE
     Indication: PRODUCT USED FOR UNKNOWN INDICATION
     Dosage: UNK/ ORAL
     Route: 048

REACTIONS (2)
  - Haemorrhage [Fatal]
  - Hepatic cirrhosis [Fatal]
